FAERS Safety Report 5444140-7 (Version None)
Quarter: 2007Q3

REPORT INFORMATION
  Report Type: 
  Country: None (occurrence: None)
  Receive Date: 20070904
  Receipt Date: 20070827
  Transmission Date: 20080115
  Serious: Yes (Other)
  Sender: FDA-Public Use
  Company Number: 2007SP017334

PATIENT
  Age: 54 Year
  Sex: Male

DRUGS (5)
  1. PEG-INTRON [Suspect]
     Indication: HEPATITIS C
     Dates: start: 20050101
  2. INFERGEN [Suspect]
     Indication: HEPATITIS C
     Dates: start: 20050101
  3. IMODIUM [Concomitant]
  4. LIBRAX [Concomitant]
  5. WELLBUTRIN [Concomitant]

REACTIONS (3)
  - CHOLECYSTECTOMY [None]
  - PANCREATIC CARCINOMA [None]
  - TERMINAL STATE [None]
